FAERS Safety Report 4395180-0 (Version None)
Quarter: 2004Q3

REPORT INFORMATION
  Report Type: 
  Country: None (occurrence: None)
  Receive Date: 20040706
  Receipt Date: 20040629
  Transmission Date: 20050211
  Serious: Yes (Hospitalization)
  Sender: FDA-Public Use
  Company Number: 200410287BYL

PATIENT
  Age: 78 Year
  Sex: Female
  Weight: 46 kg

DRUGS (12)
  1. ASPIRIN [Suspect]
     Indication: CEREBRAL INFARCTION
     Dosage: SEE IMAGE
     Route: 048
     Dates: start: 20030801, end: 20040412
  2. ASPIRIN [Suspect]
     Indication: CEREBRAL INFARCTION
     Dosage: SEE IMAGE
     Route: 048
     Dates: start: 20040511, end: 20040513
  3. LANSOPRAZOLE [Suspect]
     Indication: REFLUX OESOPHAGITIS
     Dosage: 30 MG, QD, ORAL
     Route: 048
     Dates: start: 20040213, end: 20040412
  4. ALDACTONE [Concomitant]
  5. LAC B [Concomitant]
  6. INTENURSE [Concomitant]
  7. CENNARIDE [Concomitant]
  8. ENTERONON R [Concomitant]
  9. MOBILAT [Concomitant]
  10. KENALOG [Concomitant]
  11. ISODINE [Concomitant]
  12. CALCIUM LACTATE [Concomitant]

REACTIONS (8)
  - DYSPEPSIA [None]
  - GINGIVITIS [None]
  - NEUTROPENIA [None]
  - PHARYNGOLARYNGEAL PAIN [None]
  - PYREXIA [None]
  - REFLUX OESOPHAGITIS [None]
  - SWELLING FACE [None]
  - UPPER RESPIRATORY TRACT INFECTION [None]
